FAERS Safety Report 8578788-8 (Version None)
Quarter: 2012Q3

REPORT INFORMATION
  Report Type: 
  Country: None (occurrence: None)
  Receive Date: 20120808
  Receipt Date: 20120731
  Transmission Date: 20120928
  Serious: Yes (Life-Threatening, Hospitalization, Other)
  Sender: FDA-Public Use
  Company Number: JP-VERTEX PHARMACEUTICALS INC.-AE-2012-006061

PATIENT
  Age: 64 Year
  Sex: Male

DRUGS (28)
  1. PEG-INTRON [Concomitant]
     Indication: HEPATITIS C
     Route: 058
     Dates: start: 20120410, end: 20120416
  2. DOXAZOSIN MESYLATE [Concomitant]
     Route: 048
     Dates: end: 20120412
  3. URSO 250 [Concomitant]
     Route: 048
     Dates: start: 20120424
  4. REBETOL [Concomitant]
     Indication: HEPATITIS C
     Route: 048
     Dates: start: 20120410, end: 20120412
  5. TRICHLORMETHIAZIDE [Concomitant]
     Route: 048
     Dates: start: 20120424
  6. NESINA [Concomitant]
     Route: 048
     Dates: end: 20120412
  7. METFORMIN HCL [Concomitant]
     Route: 048
     Dates: end: 20120412
  8. ADALAT CC [Concomitant]
     Route: 048
     Dates: end: 20120412
  9. OLMESARTAN MEDOXOMIL [Concomitant]
     Route: 048
     Dates: end: 20120412
  10. METFORMIN HCL [Concomitant]
     Route: 048
     Dates: start: 20120424
  11. OLMESARTAN MEDOXOMIL [Concomitant]
     Route: 048
     Dates: start: 20120421
  12. DOXAZOSIN MESYLATE [Concomitant]
     Route: 048
     Dates: start: 20120424
  13. METHYLCOBAL [Concomitant]
     Route: 048
     Dates: start: 20120424
  14. REBETOL [Concomitant]
     Route: 048
     Dates: start: 20120413, end: 20120416
  15. TRICHLORMETHIAZIDE [Concomitant]
     Route: 048
     Dates: end: 20120412
  16. AMARYL [Concomitant]
     Route: 048
     Dates: start: 20120424
  17. GLYCRON [Concomitant]
     Route: 048
     Dates: start: 20120614, end: 20120704
  18. LOXONIN [Concomitant]
     Route: 048
  19. NESINA [Concomitant]
     Route: 048
     Dates: start: 20120424
  20. AMARYL [Concomitant]
     Route: 048
     Dates: end: 20120412
  21. KINEDAK [Concomitant]
     Route: 048
  22. LENDORMIN D [Concomitant]
     Route: 048
  23. JUVELA N [Concomitant]
     Route: 048
     Dates: start: 20120424
  24. LYRICA [Concomitant]
     Route: 048
     Dates: start: 20120531, end: 20120614
  25. TELAVIC (TELAPREVIR) [Suspect]
     Indication: HEPATITIS C
     Route: 048
     Dates: start: 20120410, end: 20120416
  26. ROHYPNOL [Concomitant]
     Route: 048
     Dates: start: 20120418
  27. ADALAT CC [Concomitant]
     Route: 048
     Dates: start: 20120417
  28. KINEDAK [Concomitant]
     Route: 048
     Dates: start: 20120424

REACTIONS (5)
  - NAUSEA [None]
  - VOMITING [None]
  - GENERAL PHYSICAL HEALTH DETERIORATION [None]
  - RENAL IMPAIRMENT [None]
  - DIZZINESS [None]
